FAERS Safety Report 4673769-9 (Version None)
Quarter: 2005Q2

REPORT INFORMATION
  Report Type: 
  Country: None (occurrence: None)
  Receive Date: 20050524
  Receipt Date: 20050511
  Transmission Date: 20051028
  Serious: Yes (Death)
  Sender: FDA-Public Use
  Company Number: 11110

PATIENT

DRUGS (3)
  1. FLUOROURACIL [Suspect]
     Dosage: 20 MG/M2 OTH/350 MG/M2 OTH, IV
     Route: 042
  2. LEUCOVORIN CALCIUM [Suspect]
     Dosage: IV
     Route: 042
  3. OXALIPLATIN [Suspect]
     Dosage: IV
     Route: 042

REACTIONS (3)
  - DRUG TOXICITY [None]
  - SEPSIS [None]
  - UROSEPSIS [None]
